FAERS Safety Report 6139873-3 (Version None)
Quarter: 2009Q1

REPORT INFORMATION
  Report Type: 
  Country: None (occurrence: None)
  Receive Date: 20090324
  Receipt Date: 20090318
  Transmission Date: 20090719
  Serious: Yes (Disabling, Other)
  Sender: FDA-Public Use
  Company Number: 2009AP001139

PATIENT
  Age: 28 Year
  Sex: Male

DRUGS (5)
  1. RISPERIDONE [Suspect]
     Dosage: 6 MG;QD
  2. ARIPIPRAZOLE [Suspect]
     Dosage: 30MG; QD
  3. CLOZAPINE [Suspect]
     Dosage: 400 MG; QD; PO
     Route: 048
  4. LITHIUM CARBONATE [Suspect]
     Route: 048
  5. VALPROATE SODIUM [Suspect]
     Dosage: 1000 MG; QD

REACTIONS (7)
  - DIARRHOEA [None]
  - DYSPHAGIA [None]
  - MYOCARDIAL INFARCTION [None]
  - NEUROLEPTIC MALIGNANT SYNDROME [None]
  - PSYCHOTIC DISORDER [None]
  - PULMONARY EMBOLISM [None]
  - PULMONARY OEDEMA [None]
